FAERS Safety Report 22122637 (Version 1)
Quarter: 2023Q1

REPORT INFORMATION
  Report Type: Report from Study
  Country: AU (occurrence: AU)
  Receive Date: 20230321
  Receipt Date: 20230321
  Transmission Date: 20230418
  Serious: Yes (Hospitalization)
  Sender: FDA-Public Use
  Company Number: AU-ABBVIE-4342538

PATIENT
  Sex: Male

DRUGS (1)
  1. RINVOQ [Suspect]
     Active Substance: UPADACITINIB
     Indication: Colitis ulcerative
     Dosage: DRUG START DATE: 01 FEB 2023
     Route: 048
     Dates: end: 20230310

REACTIONS (6)
  - Feeling abnormal [Unknown]
  - Pyrexia [Recovering/Resolving]
  - Unevaluable event [Unknown]
  - Acne [Recovering/Resolving]
  - Therapeutic product effect incomplete [Unknown]
  - Malaise [Unknown]

NARRATIVE: CASE EVENT DATE: 20230101
